FAERS Safety Report 8531082-3 (Version None)
Quarter: 2012Q3

REPORT INFORMATION
  Report Type: 
  Country: None (occurrence: None)
  Receive Date: 20120711
  Receipt Date: 20120625
  Transmission Date: 20120928
  Serious: Yes (Hospitalization)
  Sender: FDA-Public Use
  Company Number: THQ2012A05638

PATIENT
  Age: 59 Year
  Sex: Female

DRUGS (1)
  1. ACTOS [Suspect]
     Indication: TYPE 2 DIABETES MELLITUS
     Dosage: 45 MG (1 D) PER ORAL
     Route: 048
     Dates: start: 20110413, end: 20110725

REACTIONS (2)
  - URETERIC CANCER [None]
  - BLADDER CANCER [None]
